FAERS Safety Report 5885416-9 (Version None)
Quarter: 2008Q3

REPORT INFORMATION
  Report Type: 
  Country: None (occurrence: None)
  Receive Date: 20080915
  Receipt Date: 20080915
  Transmission Date: 20090109
  Serious: Yes (Other)
  Sender: FDA-Public Use
  Company Number: None

PATIENT
  Age: 84 Year
  Sex: Male
  Weight: 71.6683 kg

DRUGS (1)
  1. SUDAFED 12 HOUR [Suspect]
     Dosage: 1 12 HOURS
     Dates: start: 20080906, end: 20080907

REACTIONS (1)
  - DYSURIA [None]
